FAERS Safety Report 22387932 (Version 1)
Quarter: 2023Q2

REPORT INFORMATION
  Report Type: Spontaneous
  Country: US (occurrence: US)
  Receive Date: 20230531
  Receipt Date: 20230531
  Transmission Date: 20230721
  Serious: Yes (Hospitalization, Other)
  Sender: FDA-Public Use
  Company Number: None

PATIENT
  Age: 9 Decade
  Sex: Male
  Weight: 136.1 kg

DRUGS (13)
  1. PREDNISOLONE [Suspect]
     Active Substance: PREDNISOLONE
     Indication: COVID-19
     Dosage: UNK, 5-DAY COURSES
     Route: 065
  2. PREDNISOLONE [Suspect]
     Active Substance: PREDNISOLONE
     Indication: Organising pneumonia
     Dosage: 60 MILLIGRAM, QD (ONCE A DAY EVERY MORNING ON DAY 20 AT 07:30 AND ON DAY 21 AT 08:00)
     Route: 048
  3. PREDNISOLONE [Suspect]
     Active Substance: PREDNISOLONE
     Indication: COVID-19 pneumonia
  4. METHYLPREDNISOLONE [Suspect]
     Active Substance: METHYLPREDNISOLONE
     Indication: COVID-19 pneumonia
     Dosage: 40 MILLIGRAM, EVERY 12 HRS, ON HOSPITAL DAY 8 AND HOSPITAL DAY 10
     Route: 042
  5. METHYLPREDNISOLONE [Suspect]
     Active Substance: METHYLPREDNISOLONE
     Indication: COVID-19 pneumonia
     Dosage: 62.5 MILLIGRAM, EVERY 8 HOURS, ON HOSPITAL DAY 4 AND HOSPITAL DAY 5
     Route: 042
  6. METHYLPREDNISOLONE [Suspect]
     Active Substance: METHYLPREDNISOLONE
     Dosage: 62.5 MILLIGRAM, EVERY 6 HRS, ON HOSPITAL DAY 6
     Route: 042
  7. METHYLPREDNISOLONE [Suspect]
     Active Substance: METHYLPREDNISOLONE
     Dosage: 62.5 MILLIGRAM, EVERY 12 HRS, ON HOSPITAL DAY 1 TO HOSPITAL DAY 3
     Route: 042
  8. METHYLPREDNISOLONE [Suspect]
     Active Substance: METHYLPREDNISOLONE
     Dosage: 62.5 MILLIGRAM, EVERY 12 HRS, ON HOSPITAL DAY 7
     Route: 042
  9. METHYLPREDNISOLONE [Suspect]
     Active Substance: METHYLPREDNISOLONE
     Dosage: 125 MILLIGRAM, PER DAY, 1 TIMES A DAY-AT 08:00 ON HOSPITAL DAY 19
     Route: 042
  10. METHYLPREDNISOLONE [Suspect]
     Active Substance: METHYLPREDNISOLONE
     Dosage: 125 MILLIGRAM, EVERY 6 HRS, ON HOSPITAL DAY 12
     Route: 042
  11. METHYLPREDNISOLONE [Suspect]
     Active Substance: METHYLPREDNISOLONE
     Dosage: 125 MILLIGRAM, EVERY 12 HRS, ON HOSPITAL DAY 13 TO DAY 15, 125 MG IV, 2 TIMES A DAY-AT 08:30 AND 20:
     Route: 042
  12. METHYLPREDNISOLONE [Suspect]
     Active Substance: METHYLPREDNISOLONE
     Dosage: 125 MILLIGRAM, EVERY 12 HRS, ON HOSPITAL DAY 11
     Route: 042
  13. AZITHROMYCIN [Concomitant]
     Active Substance: AZITHROMYCIN
     Indication: COVID-19
     Dosage: UNK
     Route: 065

REACTIONS (2)
  - Hyperglycaemia [Recovered/Resolved]
  - Off label use [Unknown]
